FAERS Safety Report 7051600-4 (Version None)
Quarter: 2010Q4

REPORT INFORMATION
  Report Type: 
  Country: None (occurrence: None)
  Receive Date: 20101018
  Receipt Date: 20101018
  Transmission Date: 20110411
  Serious: Yes (Disabling, Other)
  Sender: FDA-Public Use
  Company Number: None

PATIENT
  Sex: Male
  Weight: 90.7194 kg

DRUGS (1)
  1. PERFOROMIST [Suspect]
     Indication: CHRONIC OBSTRUCTIVE PULMONARY DISEASE
     Dosage: 2ML 2XDAILY PO
     Route: 048
     Dates: start: 20100901, end: 20101001

REACTIONS (3)
  - DYSPNOEA [None]
  - FRUSTRATION [None]
  - STRESS [None]
